FAERS Safety Report 16549821 (Version 1)
Quarter: 2019Q3

REPORT INFORMATION
  Report Type: Spontaneous
  Country: GB (occurrence: GB)
  Receive Date: 20190710
  Receipt Date: 20190710
  Transmission Date: 20191004
  Serious: Yes (Disabling)
  Sender: FDA-Public Use
  Company Number: GB-AMGEN-GBRSP2019106374

PATIENT
  Age: 74 Year
  Sex: Male
  Weight: 65 kg

DRUGS (1)
  1. PROLIA [Suspect]
     Active Substance: DENOSUMAB
     Indication: OSTEOPOROSIS
     Dosage: 60 MILLIGRAM,UNK
     Route: 058
     Dates: start: 20181217, end: 20190108

REACTIONS (3)
  - Erection increased [Recovered/Resolved]
  - Faeces discoloured [Recovered/Resolved]
  - Testicular swelling [Recovered/Resolved]

NARRATIVE: CASE EVENT DATE: 20181219
